FAERS Safety Report 6504717-4 (Version None)
Quarter: 2009Q4

REPORT INFORMATION
  Report Type: 
  Country: None (occurrence: None)
  Receive Date: 20091218
  Receipt Date: 20091117
  Transmission Date: 20100525
  Serious: No
  Sender: FDA-Public Use
  Company Number: US-BAYER-200940031NA

PATIENT
  Age: 54 Year
  Sex: Male

DRUGS (4)
  1. LEVITRA [Suspect]
     Indication: ERECTILE DYSFUNCTION
     Dosage: UNIT DOSE: 20 MG
  2. LEVITRA [Suspect]
     Dosage: UNIT DOSE: 10 MG
  3. CIALIS [Concomitant]
     Indication: ERECTILE DYSFUNCTION
  4. VIAGRA [Concomitant]
     Indication: ERECTILE DYSFUNCTION

REACTIONS (1)
  - HEADACHE [None]
